FAERS Safety Report 5789254-7 (Version None)
Quarter: 2008Q2

REPORT INFORMATION
  Report Type: 
  Country: None (occurrence: None)
  Receive Date: 20080625
  Receipt Date: 20080625
  Transmission Date: 20081010
  Serious: Yes (Hospitalization)
  Sender: FDA-Public Use
  Company Number: None

PATIENT
  Sex: Female
  Weight: 48.2 kg

DRUGS (13)
  1. CELEBREX [Suspect]
     Indication: OVARIAN CANCER
     Dosage: 400 MG BID PO
     Route: 048
     Dates: start: 20080619, end: 20080623
  2. CYTOXAN [Suspect]
     Indication: OVARIAN CANCER
     Dosage: 50 MG DAILY PO
     Route: 048
     Dates: start: 20080619, end: 20080622
  3. ARMOUR THYROID [Concomitant]
  4. COLACE [Concomitant]
  5. PEPCID [Concomitant]
  6. MAGNESIUM [Concomitant]
  7. REGLAN [Concomitant]
  8. ZOFRAN [Concomitant]
  9. PROTONIX [Concomitant]
  10. POTASSIUM CHLORIDE [Concomitant]
  11. REQUIP [Concomitant]
  12. TRAVOPROST [Concomitant]
  13. VITAMIN B [Concomitant]

REACTIONS (11)
  - ABDOMINAL DISTENSION [None]
  - ASTHENIA [None]
  - CONDITION AGGRAVATED [None]
  - DYSPNOEA [None]
  - FATIGUE [None]
  - MALIGNANT ASCITES [None]
  - OBSTRUCTION [None]
  - ORAL INTAKE REDUCED [None]
  - PARACENTESIS [None]
  - VOMITING [None]
  - WEIGHT DECREASED [None]
